FAERS Safety Report 9960024 (Version 1)
Quarter: 2014Q1

REPORT INFORMATION
  Report Type: Report from Study
  Country: US (occurrence: US)
  Receive Date: 20140305
  Receipt Date: 20140305
  Transmission Date: 20141002
  Serious: No
  Sender: FDA-Public Use
  Company Number: US-ABBVIE-13P-163-1103147-00

PATIENT
  Age: 25 Year
  Sex: Female

DRUGS (6)
  1. HUMIRA [Suspect]
     Indication: PSORIASIS
     Dates: start: 20130410, end: 20130410
  2. HUMIRA [Suspect]
     Dates: start: 20130417
  3. KEFLEX [Suspect]
     Dates: start: 20130521
  4. VICODIN [Concomitant]
     Indication: PAIN
     Dosage: 5/500 MG
     Dates: start: 20130521
  5. TRAMADOL [Concomitant]
     Indication: PAIN
     Dates: start: 201305
  6. ROBAXIN [Concomitant]
     Indication: MUSCLE RELAXANT THERAPY
     Dates: start: 201305

REACTIONS (1)
  - Rash [Recovered/Resolved]
